FAERS Safety Report 6035916-6 (Version None)
Quarter: 2009Q1

REPORT INFORMATION
  Report Type: 
  Country: None (occurrence: None)
  Receive Date: 20090113
  Receipt Date: 20090109
  Transmission Date: 20090719
  Serious: Yes (Hospitalization)
  Sender: FDA-Public Use
  Company Number: A0763077A

PATIENT
  Age: 63 Year
  Sex: Female
  Weight: 65.9 kg

DRUGS (7)
  1. AVANDIA [Suspect]
     Dosage: 4MG PER DAY
     Route: 048
     Dates: start: 20040701, end: 20070412
  2. ACTOS [Concomitant]
  3. METFORMIN [Concomitant]
  4. ATENOLOL [Concomitant]
  5. PREDNISONE TAB [Concomitant]
  6. HYDROCHLOROTHIAZIDE [Concomitant]
  7. ZOCOR [Concomitant]

REACTIONS (3)
  - CARDIAC DISORDER [None]
  - CHEST PAIN [None]
  - PAIN [None]
